FAERS Safety Report 4362197-1 (Version None)
Quarter: 2004Q2

REPORT INFORMATION
  Report Type: 
  Country: None (occurrence: None)
  Receive Date: 20040521
  Receipt Date: 20040310
  Transmission Date: 20050107
  Serious: Yes (Life-Threatening)
  Sender: FDA-Public Use
  Company Number: 200410955FR

PATIENT
  Age: 77 Year
  Sex: Male
  Weight: 60 kg

DRUGS (7)
  1. KETEK [Suspect]
     Indication: BRONCHITIS
     Route: 048
     Dates: start: 20040120, end: 20040123
  2. TERCIAN [Suspect]
     Indication: SLEEP DISORDER
     Route: 048
     Dates: start: 20030601, end: 20040123
  3. AMIODARONE HCL [Suspect]
     Indication: ATRIAL FIBRILLATION
     Route: 048
     Dates: start: 20030601, end: 20040123
  4. AMIODARONE HCL [Suspect]
     Indication: ATRIAL FLUTTER
     Route: 048
     Dates: start: 20030601, end: 20040123
  5. LASIX [Concomitant]
     Indication: CIRRHOSIS ALCOHOLIC
     Route: 048
     Dates: start: 20030601
  6. NEURONTIN [Concomitant]
     Route: 048
     Dates: start: 20030601
  7. ALDACTONE [Concomitant]
     Indication: CIRRHOSIS ALCOHOLIC
     Route: 048
     Dates: start: 20030601

REACTIONS (6)
  - ATRIOVENTRICULAR BLOCK COMPLETE [None]
  - BLOOD POTASSIUM INCREASED [None]
  - BRADYCARDIA [None]
  - DRUG INTERACTION [None]
  - LOSS OF CONSCIOUSNESS [None]
  - MALAISE [None]
